FAERS Safety Report 5117792-9 (Version None)
Quarter: 2006Q3

REPORT INFORMATION
  Report Type: 
  Country: None (occurrence: None)
  Receive Date: 20060926
  Receipt Date: 20060915
  Transmission Date: 20061208
  Serious: No
  Sender: FDA-Public Use
  Company Number: E2020-00391-SPO-JP

PATIENT
  Age: 72 Year
  Sex: Female

DRUGS (3)
  1. ARICEPT [Suspect]
     Dosage: 5 MG, 1 IN 1 D, ORAL
     Route: 048
     Dates: start: 20050110, end: 20060801
  2. TETRAMIDE (MIANSERIN HYDROCHLORIDE) [Concomitant]
  3. LUVOX [Concomitant]

REACTIONS (2)
  - ATRIOVENTRICULAR BLOCK [None]
  - SICK SINUS SYNDROME [None]
